FAERS Safety Report 23898930 (Version 2)
Quarter: 2024Q2

REPORT INFORMATION
  Report Type: Spontaneous
  Country: CA (occurrence: CA)
  Receive Date: 20240525
  Receipt Date: 20240628
  Transmission Date: 20240716
  Serious: Yes (Hospitalization, Other)
  Sender: FDA-Public Use
  Company Number: None

PATIENT
  Age: 7 Decade
  Sex: Female

DRUGS (12)
  1. TEMOZOLOMIDE [Suspect]
     Active Substance: TEMOZOLOMIDE
     Indication: Glioblastoma multiforme
  2. FLUCONAZOLE [Suspect]
     Active Substance: FLUCONAZOLE
     Indication: Cryptococcosis
     Dosage: 1 EVERY 1 DAYS
  3. DEXAMETHASONE [Suspect]
     Active Substance: DEXAMETHASONE
     Indication: Product used for unknown indication
     Dosage: EVERY 2 DAYS
  4. ROSUVASTATIN [Concomitant]
     Active Substance: ROSUVASTATIN
     Indication: Dyslipidaemia
     Route: 058
  5. CALCIUM CARBONATE [Concomitant]
     Active Substance: CALCIUM CARBONATE
     Indication: Gastrooesophageal reflux disease
  6. LEVOTHYROXINE SODIUM [Concomitant]
     Active Substance: LEVOTHYROXINE SODIUM
     Route: 065
  7. ONDANSETRON [Concomitant]
     Active Substance: ONDANSETRON
     Indication: Hypothyroidism
  8. PANTOPRAZOLE [Concomitant]
     Active Substance: PANTOPRAZOLE
     Indication: Gastrooesophageal reflux disease
  9. AZITHROMYCIN [Concomitant]
     Active Substance: AZITHROMYCIN
     Indication: Pneumonia
  10. PREGABALIN [Concomitant]
     Active Substance: PREGABALIN
     Indication: Hypothyroidism
  11. CEFTRIAXONE SODIUM [Concomitant]
     Active Substance: CEFTRIAXONE SODIUM
     Indication: Evidence based treatment
  12. DEXAMETHASONE [Suspect]
     Active Substance: DEXAMETHASONE
     Indication: Product used for unknown indication
     Dosage: EVERY 1 DAYS

REACTIONS (10)
  - Atelectasis [Recovered/Resolved]
  - Confusional state [Recovered/Resolved]
  - Cryptococcosis [Recovered/Resolved]
  - Disseminated cryptococcosis [Recovered/Resolved]
  - Lymphopenia [Recovered/Resolved]
  - Pleural effusion [Recovered/Resolved]
  - Pneumonia cryptococcal [Recovered/Resolved]
  - Acute kidney injury [Recovering/Resolving]
  - Nausea [Recovering/Resolving]
  - Oedema peripheral [Recovering/Resolving]
